FAERS Safety Report 6227318-4 (Version None)
Quarter: 2009Q2

REPORT INFORMATION
  Report Type: 
  Country: None (occurrence: None)
  Receive Date: 20090612
  Receipt Date: 20090602
  Transmission Date: 20091009
  Serious: Yes (Other)
  Sender: FDA-Public Use
  Company Number: BR-JNJFOC-20090601555

PATIENT
  Age: 5 Month
  Sex: Female
  Weight: 7 kg

DRUGS (2)
  1. TYLENOL (CAPLET) [Suspect]
  2. TYLENOL (CAPLET) [Suspect]
     Indication: PYREXIA

REACTIONS (6)
  - ACCIDENTAL OVERDOSE [None]
  - FEELING COLD [None]
  - HYPERHIDROSIS [None]
  - LISTLESS [None]
  - SKIN DISCOLOURATION [None]
  - SOMNOLENCE [None]
